FAERS Safety Report 4851712-7 (Version None)
Quarter: 2005Q4

REPORT INFORMATION
  Report Type: 
  Country: None (occurrence: None)
  Receive Date: 20051209
  Receipt Date: 20051129
  Transmission Date: 20060501
  Serious: Yes (Hospitalization, Other)
  Sender: FDA-Public Use
  Company Number: EM2005-0489

PATIENT
  Age: 73 Year
  Sex: Male

DRUGS (4)
  1. PROLEUKIN [Suspect]
     Indication: RENAL CELL CARCINOMA STAGE UNSPECIFIED
     Dosage: SUBCUTAN.
     Route: 058
     Dates: start: 20050324, end: 20050329
  2. INTERFERON ALFA (INTERFERON ALFA) [Suspect]
     Indication: RENAL CELL CARCINOMA STAGE UNSPECIFIED
     Dosage: 11 MU, QD, SUBCUTAN.
     Route: 058
     Dates: start: 20050302, end: 20050404
  3. FLUOROURACIL [Suspect]
     Indication: RENAL CELL CARCINOMA STAGE UNSPECIFIED
  4. ASPIRIN [Concomitant]

REACTIONS (7)
  - ASTHENIA [None]
  - CEREBRAL ATROPHY [None]
  - CEREBRAL INFARCTION [None]
  - CHEST PAIN [None]
  - CIRCULATORY COLLAPSE [None]
  - GAIT DISTURBANCE [None]
  - URINARY RETENTION [None]
